FAERS Safety Report 8500257-1 (Version None)
Quarter: 2012Q3

REPORT INFORMATION
  Report Type: 
  Country: None (occurrence: None)
  Receive Date: 20120710
  Receipt Date: 20120706
  Transmission Date: 20120928
  Serious: Yes (Death)
  Sender: FDA-Public Use
  Company Number: US-CELGENEUS-163-21880-12063351

PATIENT
  Sex: Male
  Weight: 67.192 kg

DRUGS (16)
  1. ASPIRIN [Concomitant]
     Dosage: 81 MILLIGRAM
     Route: 048
  2. SENNA-MINT WAF [Concomitant]
     Dosage: 8.6MG-50MG
     Route: 048
  3. FERROUS SULFATE TAB [Concomitant]
     Dosage: 325 MILLIGRAM
     Route: 048
  4. SIMVASTATIN [Concomitant]
     Dosage: 5 MILLIGRAM
     Route: 048
  5. REVLIMID [Suspect]
     Indication: MULTIPLE MYELOMA
     Dosage: 25 MILLIGRAM
     Route: 048
     Dates: start: 20120106, end: 20120101
  6. HYDROCHLOROTHIAZIDE [Concomitant]
     Dosage: 25 MILLIGRAM
     Route: 048
  7. LISINOPRIL [Concomitant]
     Dosage: 2.5 MILLIGRAM
     Route: 048
  8. SEPTRA [Concomitant]
     Dosage: 800-160MG
     Route: 048
  9. GLIPIZIDE [Concomitant]
     Dosage: 10 MILLIGRAM
     Route: 048
  10. METFORMIN HCL [Concomitant]
     Dosage: 500 MILLIGRAM
     Route: 048
  11. MIRALAX [Concomitant]
     Dosage: 17 GRAM
     Route: 048
  12. MULTI-VITAMINS [Concomitant]
     Route: 048
  13. HYDROCODONE BITARTRATE + ACETAMINOPHEN [Concomitant]
     Dosage: 5MG-325MG
     Route: 048
  14. PROCHLORPERAZINE MALEATE [Concomitant]
     Indication: NAUSEA
     Dosage: 10 MILLIGRAM
     Route: 048
  15. DILTIAZEM HCL [Concomitant]
     Dosage: 180 MILLIGRAM
     Route: 048
  16. VITAMIN D [Concomitant]
     Dosage: 2000 UNIT
     Route: 048

REACTIONS (1)
  - DEATH [None]
